FAERS Safety Report 4527658-0 (Version None)
Quarter: 2004Q4

REPORT INFORMATION
  Report Type: 
  Country: None (occurrence: None)
  Receive Date: 20041215
  Receipt Date: 20041202
  Transmission Date: 20050328
  Serious: Yes (Hospitalization, Other)
  Sender: FDA-Public Use
  Company Number: US-GLAXOSMITHKLINE-A0535794A

PATIENT
  Age: 73 Year
  Sex: Male
  Weight: 81 kg

DRUGS (5)
  1. CITRUCEL CLEAR MIX [Suspect]
     Indication: DIVERTICULUM
     Route: 048
     Dates: start: 20030101
  2. BENEFIBER [Concomitant]
     Route: 048
  3. FLAX SEED [Concomitant]
  4. ZOCOR [Concomitant]
     Indication: BLOOD CHOLESTEROL INCREASED
     Route: 048
  5. PRILOSEC [Concomitant]

REACTIONS (5)
  - COLONIC STENOSIS [None]
  - CONDITION AGGRAVATED [None]
  - FUNGAL INFECTION [None]
  - ORAL FUNGAL INFECTION [None]
  - RECTAL HAEMORRHAGE [None]
